FAERS Safety Report 8549115 (Version 2)
Quarter: 2012Q4

REPORT INFORMATION
  Report Type: 
  Country: US (occurrence: US)
  Receive Date: 20120507
  Receipt Date: 20121206
  Transmission Date: 20130627
  Serious: Yes (Hospitalization, Other)
  Sender: FDA-Public Use
  Company Number: US-ASTRAZENECA-2012SE28057

PATIENT
  Age: 57 Year
  Sex: Male
  Weight: 56.7 kg

DRUGS (7)
  1. PRILOSEC OTC [Suspect]
     Route: 048
  2. NEXIUM [Suspect]
     Route: 048
  3. OMEPRAZOLE [Suspect]
     Route: 048
  4. BENZOTROPINE MESYLATE [Concomitant]
  5. HALOPERIDOL [Concomitant]
     Route: 048
  6. HALOPERIDOL [Concomitant]
     Route: 048
  7. PAROXETINE HCL [Concomitant]

REACTIONS (28)
  - Candidiasis [Unknown]
  - Gastric ulcer [Unknown]
  - Off label use [Unknown]
  - Dysphagia [Unknown]
  - Gastrinoma malignant [Unknown]
  - Gastrinoma [Unknown]
  - Gastrointestinal haemorrhage [Unknown]
  - Oesophageal stenosis [Unknown]
  - Weight decreased [Unknown]
  - Dehydration [Unknown]
  - Duodenal neoplasm [Unknown]
  - Neuroendocrine carcinoma [Unknown]
  - Metaplasia [Unknown]
  - Vomiting [Unknown]
  - Gastrointestinal ulcer [Unknown]
  - Appetite disorder [Unknown]
  - Pallor [Unknown]
  - Choking [Unknown]
  - Gastrooesophageal reflux disease [Unknown]
  - Dysphagia [Unknown]
  - Cholecystitis chronic [Unknown]
  - Duodenitis [Unknown]
  - Duodenal ulcer [Unknown]
  - Barrett^s oesophagus [Unknown]
  - Oesophagitis ulcerative [Unknown]
  - Hiatus hernia [Unknown]
  - Aphasia [Unknown]
  - Gastrointestinal hypomotility [Unknown]
